FAERS Safety Report 13080207 (Version 1)
Quarter: 2017Q1

REPORT INFORMATION
  Report Type: Report from Study
  Country: US (occurrence: US)
  Receive Date: 20170103
  Receipt Date: 20170103
  Transmission Date: 20170428
  Serious: Yes (Death)
  Sender: FDA-Public Use
  Company Number: US-B. BRAUN MEDICAL INC.-1061448

PATIENT
  Age: 10 Year
  Sex: Male

DRUGS (9)
  1. METRONIDAZOLE. [Suspect]
     Active Substance: METRONIDAZOLE
     Route: 042
  2. EPINEPHRINE. [Concomitant]
     Active Substance: EPINEPHRINE
     Route: 042
  3. ONDANSETRON [Suspect]
     Active Substance: ONDANSETRON
     Route: 042
  4. ATROPINE. [Concomitant]
     Active Substance: ATROPINE
  5. MORPHINE [Concomitant]
     Active Substance: MORPHINE
     Route: 042
  6. CEFAZOLIN [Concomitant]
     Active Substance: CEFAZOLIN
     Route: 042
  7. AMIODARONE [Concomitant]
     Active Substance: AMIODARONE
  8. NORMAL SALINE [Concomitant]
     Active Substance: SODIUM CHLORIDE
  9. LACTATED RINGERS [Concomitant]
     Active Substance: CALCIUM CHLORIDE\POTASSIUM CHLORIDE\SODIUM CHLORIDE\SODIUM LACTATE
     Route: 042

REACTIONS (2)
  - Electrocardiogram QT prolonged [Fatal]
  - Drug interaction [Unknown]
